FAERS Safety Report 15467481 (Version 1)
Quarter: 2018Q4

REPORT INFORMATION
  Report Type: Spontaneous
  Country: PT (occurrence: PT)
  Receive Date: 20181005
  Receipt Date: 20181005
  Transmission Date: 20190204
  Serious: Yes (Life-Threatening, Hospitalization, Other)
  Sender: FDA-Public Use
  Company Number: PT-AUROBINDO-AUR-APL-2018-048665

PATIENT
  Age: 50 Year
  Sex: Male

DRUGS (5)
  1. PREDNISONE. [Suspect]
     Active Substance: PREDNISONE
     Dosage: 150 MILLIGRAM, DAILY
     Route: 048
     Dates: start: 20180508
  2. PREDNISONE. [Suspect]
     Active Substance: PREDNISONE
     Indication: ACUTE GRAFT VERSUS HOST DISEASE
     Dosage: 160 MILLIGRAM, DAILY
     Route: 048
     Dates: start: 20180404
  3. ITACITINIB [Suspect]
     Active Substance: ITACITINIB
     Indication: ACUTE GRAFT VERSUS HOST DISEASE
     Dosage: STUDY MEDICATION ITACITINIB OR PLACEBO (CODE NOT BROKEN), LAST DOSE PRIOR TO THE AE: 23-APR-2018
     Route: 065
     Dates: start: 20180404, end: 20180423
  4. CYCLOSPORINE. [Suspect]
     Active Substance: CYCLOSPORINE
     Indication: ACUTE GRAFT VERSUS HOST DISEASE
     Dosage: UNK
     Route: 065
     Dates: start: 20180206
  5. VALGANCICLOVIR. [Suspect]
     Active Substance: VALGANCICLOVIR
     Indication: PRODUCT USED FOR UNKNOWN INDICATION
     Dosage: 1800 MILLIGRAM, DAILY
     Route: 048
     Dates: start: 20180409, end: 20180426

REACTIONS (2)
  - Cytomegalovirus infection [Recovered/Resolved]
  - Thrombocytopenia [Unknown]

NARRATIVE: CASE EVENT DATE: 201804
